FAERS Safety Report 5569434-6 (Version None)
Quarter: 2007Q4

REPORT INFORMATION
  Report Type: 
  Country: None (occurrence: None)
  Receive Date: 20071220
  Receipt Date: 20071217
  Transmission Date: 20080405
  Serious: Yes (Death, Hospitalization)
  Sender: FDA-Public Use
  Company Number: DE-JNJFOC-20070605111

PATIENT
  Age: 58 Year
  Sex: Male

DRUGS (13)
  1. HALDOL [Suspect]
     Route: 048
  2. HALDOL [Suspect]
     Indication: DRUG USE FOR UNKNOWN INDICATION
     Route: 048
  3. SEROQUEL [Suspect]
     Indication: DRUG USE FOR UNKNOWN INDICATION
     Route: 048
  4. DIPIPERON [Suspect]
     Indication: DRUG USE FOR UNKNOWN INDICATION
     Route: 048
  5. CIPRO [Interacting]
     Indication: DRUG USE FOR UNKNOWN INDICATION
     Route: 048
  6. METOHEXAL [Interacting]
     Indication: DRUG USE FOR UNKNOWN INDICATION
     Route: 048
  7. NEXIUM [Interacting]
     Indication: DRUG USE FOR UNKNOWN INDICATION
     Route: 048
  8. CITALOPRAM HYDROBROMIDE [Concomitant]
     Route: 048
  9. TAVOR [Concomitant]
     Route: 048
  10. FLUNITRAZEPAM [Concomitant]
     Route: 048
  11. SALOFALK [Concomitant]
     Route: 048
  12. NOVALGIN [Concomitant]
     Route: 048
  13. FRAGMIN [Concomitant]
     Route: 058

REACTIONS (2)
  - DRUG INTERACTION [None]
  - SUDDEN DEATH [None]
